FAERS Safety Report 4595458-1 (Version None)
Quarter: 2005Q1

REPORT INFORMATION
  Report Type: 
  Country: None (occurrence: None)
  Receive Date: 20050224
  Receipt Date: 20050203
  Transmission Date: 20050727
  Serious: Yes (Hospitalization, Other)
  Sender: FDA-Public Use
  Company Number: US_0411108150

PATIENT
  Age: 37 Year
  Sex: Male
  Weight: 100 kg

DRUGS (17)
  1. ZYPREXA [Suspect]
     Indication: SCHIZOAFFECTIVE DISORDER
     Dosage: 20 MG/1 AT BEDTIME
     Dates: start: 19960101, end: 20000101
  2. ABILIFY [Concomitant]
  3. CLOZARIL [Concomitant]
  4. SEROQUEL [Concomitant]
  5. RISPERDAL [Concomitant]
  6. GEODON [Concomitant]
  7. THORAZINE [Concomitant]
  8. HALDOL (HALOPERIDOL DECANOATE) [Concomitant]
  9. NAVANE [Concomitant]
  10. DEPAKOTE [Concomitant]
  11. DEPAKENE [Concomitant]
  12. WELLBUTRIN [Concomitant]
  13. LOPRESSOR [Concomitant]
  14. PROLIXIN [Concomitant]
  15. COGENTIN [Concomitant]
  16. ZANTAC [Concomitant]
  17. ATIVAN [Concomitant]

REACTIONS (38)
  - AGGRESSION [None]
  - AKATHISIA [None]
  - ANGER [None]
  - ANXIETY [None]
  - ARTHRALGIA [None]
  - CONDITION AGGRAVATED [None]
  - CONTUSION [None]
  - DELUSION [None]
  - DIABETES MELLITUS [None]
  - DILATATION ATRIAL [None]
  - DIPLOPIA [None]
  - DRUG ABUSER [None]
  - DRUG SCREEN POSITIVE [None]
  - DYSLIPIDAEMIA [None]
  - ECCHYMOSIS [None]
  - ELECTROCARDIOGRAM T WAVE ABNORMAL [None]
  - EXCORIATION [None]
  - FACIAL PAIN [None]
  - HALLUCINATION [None]
  - HEADACHE [None]
  - HOSTILITY [None]
  - HYPERTENSION [None]
  - IRRITABILITY [None]
  - LACERATION [None]
  - MYOCARDIAL INFARCTION [None]
  - NECK PAIN [None]
  - NIGHTMARE [None]
  - PARANOIA [None]
  - PSYCHOTIC DISORDER [None]
  - QRS AXIS ABNORMAL [None]
  - REFUSAL OF TREATMENT BY PATIENT [None]
  - SINUS ARRHYTHMIA [None]
  - SLEEP APNOEA SYNDROME [None]
  - SNORING [None]
  - SWELLING [None]
  - TREATMENT NONCOMPLIANCE [None]
  - TREMOR [None]
  - VICTIM OF CRIME [None]
